FAERS Safety Report 25624631 (Version 2)
Quarter: 2025Q3

REPORT INFORMATION
  Report Type: Report from Study
  Country: CA (occurrence: CA)
  Receive Date: 20250730
  Receipt Date: 20250904
  Transmission Date: 20251020
  Serious: Yes (Other)
  Sender: ABBVIE
  Company Number: CA-ABBVIE-6392507

PATIENT
  Age: 49 Year
  Sex: Female

DRUGS (1)
  1. RINVOQ [Suspect]
     Active Substance: UPADACITINIB
     Indication: Crohn^s disease
     Route: 048
     Dates: end: 202507

REACTIONS (9)
  - Loss of consciousness [Unknown]
  - Oral candidiasis [Unknown]
  - Abdominal pain upper [Unknown]
  - Rash macular [Unknown]
  - Muscle spasms [Unknown]
  - Nephrolithiasis [Unknown]
  - Post procedural complication [Unknown]
  - Drain placement [Unknown]
  - Drug ineffective [Unknown]

NARRATIVE: CASE EVENT DATE: 20250724
